FAERS Safety Report 8611146-6 (Version None)
Quarter: 2012Q3

REPORT INFORMATION
  Report Type: 
  Country: None (occurrence: None)
  Receive Date: 20120806
  Receipt Date: 20120723
  Transmission Date: 20120928
  Serious: No
  Sender: FDA-Public Use
  Company Number: ACO_30724_2012

PATIENT
  Age: 42 Year
  Sex: Female

DRUGS (5)
  1. AMPYRA [Suspect]
     Indication: SECONDARY PROGRESSIVE MULTIPLE SCLEROSIS
     Dosage: 10 MG, BID
     Dates: start: 20120501, end: 20120501
  2. BACLOFEN [Concomitant]
  3. COPAXONE [Suspect]
     Indication: PRODUCT USED FOR UNKNOWN INDICATION
     Dates: start: 20120501
  4. TIZANIDINE HCL [Concomitant]
  5. ENABLEX [Concomitant]

REACTIONS (7)
  - TONGUE BITING [None]
  - INAPPROPRIATE SCHEDULE OF DRUG ADMINISTRATION [None]
  - FATIGUE [None]
  - FEELING ABNORMAL [None]
  - DIZZINESS [None]
  - DISTURBANCE IN ATTENTION [None]
  - HEADACHE [None]
